FAERS Safety Report 25241490 (Version 2)
Quarter: 2025Q2

REPORT INFORMATION
  Report Type: Report from Study
  Country: US (occurrence: US)
  Receive Date: 20250425
  Receipt Date: 20250520
  Transmission Date: 20250717
  Serious: No
  Sender: ABBVIE
  Company Number: US-ABBVIE-6244651

PATIENT
  Sex: Male
  Weight: 64.863 kg

DRUGS (1)
  1. CREON [Suspect]
     Active Substance: PANCRELIPASE AMYLASE\PANCRELIPASE LIPASE\PANCRELIPASE PROTEASE
     Indication: Pancreatic disorder
     Route: 048
     Dates: start: 202410

REACTIONS (3)
  - Dysphonia [Unknown]
  - Vocal cord thickening [Not Recovered/Not Resolved]
  - Gastrointestinal inflammation [Unknown]
